FAERS Safety Report 24835923 (Version 2)
Quarter: 2025Q1

REPORT INFORMATION
  Report Type: Spontaneous
  Country: US (occurrence: US)
  Receive Date: 20250113
  Receipt Date: 20250318
  Transmission Date: 20250408
  Serious: Yes (Hospitalization)
  Sender: ENDO
  Company Number: US-ENDO USA, INC.-2025-000002

PATIENT
  Age: 67 Year
  Sex: Male

DRUGS (1)
  1. KETALAR [Suspect]
     Active Substance: KETAMINE HYDROCHLORIDE
     Indication: Product used for unknown indication
     Route: 065

REACTIONS (1)
  - Cholangitis sclerosing [Unknown]
